FAERS Safety Report 5223955-4 (Version None)
Quarter: 2007Q1

REPORT INFORMATION
  Report Type: 
  Country: None (occurrence: None)
  Receive Date: 20070130
  Receipt Date: 20070125
  Transmission Date: 20070707
  Serious: Yes (Hospitalization)
  Sender: FDA-Public Use
  Company Number: US-GLAXOSMITHKLINE-A0637044A

PATIENT
  Age: 55 Year
  Sex: Female

DRUGS (11)
  1. AVANDIA [Suspect]
     Dosage: 8MG PER DAY
     Route: 048
  2. NEXIUM [Concomitant]
  3. ACCUPRIL [Concomitant]
  4. TOPROL-XL [Concomitant]
  5. ZOCOR [Concomitant]
  6. FUROSEMIDE [Concomitant]
  7. AMITRIPTYLINE HCL [Concomitant]
  8. POTASSIUM ACETATE [Concomitant]
  9. TRIAMTERENE AND HYDROCHLOROTHIAZIDE [Concomitant]
  10. ALLEGRA [Concomitant]
  11. PLAVIX [Concomitant]

REACTIONS (8)
  - ANURIA [None]
  - ARTERIAL OCCLUSIVE DISEASE [None]
  - BODY TEMPERATURE INCREASED [None]
  - DYSPNOEA [None]
  - HAEMATOMA [None]
  - HAEMORRHAGE [None]
  - OXYGEN SATURATION DECREASED [None]
  - TOOTH LOSS [None]
